FAERS Safety Report 5314718-X (Version None)
Quarter: 2007Q2

REPORT INFORMATION
  Report Type: 
  Country: None (occurrence: None)
  Receive Date: 20070427
  Receipt Date: 20070416
  Transmission Date: 20071010
  Serious: Yes (Other)
  Sender: FDA-Public Use
  Company Number: GXKR2007GB03542

PATIENT
  Age: 82 Year
  Sex: Female

DRUGS (1)
  1. DICLOFENAC SODIUM [Suspect]
     Indication: ARTHRITIS
     Dosage: 75 MG, ORAL
     Route: 048
     Dates: start: 20070329, end: 20070329

REACTIONS (4)
  - DIZZINESS [None]
  - LIP SWELLING [None]
  - PRURITUS [None]
  - URTICARIA [None]
